FAERS Safety Report 16788633 (Version 5)
Quarter: 2021Q2

REPORT INFORMATION
  Report Type: Report from Study
  Country: FR (occurrence: FR)
  Receive Date: 20190910
  Receipt Date: 20210430
  Transmission Date: 20210716
  Serious: Yes (Hospitalization)
  Sender: FDA-Public Use
  Company Number: FR-ROCHE-2395692

PATIENT
  Age: 64 Year
  Sex: Female
  Weight: 66 kg

DRUGS (6)
  1. UVEDOSE [Concomitant]
     Active Substance: CHOLECALCIFEROL
  2. DAFALGAN CODEINE [Concomitant]
     Active Substance: ACETAMINOPHEN\CODEINE PHOSPHATE
  3. SEROPLEX [Concomitant]
     Active Substance: ESCITALOPRAM OXALATE
  4. LEVOTHYROX [Concomitant]
     Active Substance: LEVOTHYROXINE
  5. VEMURAFENIB. [Suspect]
     Active Substance: VEMURAFENIB
     Indication: MALIGNANT MELANOMA
     Dosage: MOST RECENT DOSE OF VEMURAFENIB PRIOR TO ONSET OF ERYTHEMA MULTIFORME: 27/AUG/2019
     Route: 048
     Dates: start: 20190814
  6. COBIMETINIB. [Suspect]
     Active Substance: COBIMETINIB
     Indication: MALIGNANT MELANOMA
     Dosage: DATE OF MOST RECENT DOSE OF COBIMETINIB PRIOR TO ONSET OF ERYTHEMA MULTIFORME: 27/AUG/2019
     Route: 048
     Dates: start: 20190814

REACTIONS (1)
  - Erythema multiforme [Recovered/Resolved]

NARRATIVE: CASE EVENT DATE: 20190825
